FAERS Safety Report 12702168 (Version 3)
Quarter: 2016Q4

REPORT INFORMATION
  Report Type: Spontaneous
  Country: US (occurrence: US)
  Receive Date: 20160831
  Receipt Date: 20161014
  Transmission Date: 20170207
  Serious: No
  Sender: FDA-Public Use
  Company Number: US-PFIZER INC-2016400943

PATIENT
  Age: 46 Year
  Sex: Female

DRUGS (2)
  1. PREMARIN [Suspect]
     Active Substance: ESTROGENS, CONJUGATED
     Indication: HORMONE REPLACEMENT THERAPY
  2. PREMARIN [Suspect]
     Active Substance: ESTROGENS, CONJUGATED
     Indication: MENOPAUSE
     Dosage: UNK
     Dates: start: 1995

REACTIONS (4)
  - Emotional disorder [Unknown]
  - Insomnia [Unknown]
  - Feeling abnormal [Not Recovered/Not Resolved]
  - Migraine [Unknown]
